FAERS Safety Report 8083481-4 (Version None)
Quarter: 2012Q1

REPORT INFORMATION
  Report Type: 
  Country: None (occurrence: None)
  Receive Date: 20120127
  Receipt Date: 20110214
  Transmission Date: 20120608
  Serious: Yes (Hospitalization)
  Sender: FDA-Public Use
  Company Number: US-ABBOTT-11P-163-0700936-00

PATIENT
  Age: 38 Year
  Sex: Female

DRUGS (1)
  1. HUMIRA [Suspect]
     Indication: CROHN'S DISEASE
     Route: 058
     Dates: start: 20100801

REACTIONS (5)
  - GASTROINTESTINAL INFECTION [None]
  - BREAST PAIN [None]
  - CROHN'S DISEASE [None]
  - ABDOMINAL PAIN [None]
  - DEHYDRATION [None]
